FAERS Safety Report 8629140 (Version 2)
Quarter: 2014Q1

REPORT INFORMATION
  Report Type: Spontaneous
  Country: US (occurrence: US)
  Receive Date: 20120621
  Receipt Date: 20140128
  Transmission Date: 20141002
  Serious: No
  Sender: FDA-Public Use
  Company Number: US-ASTRAZENECA-2012SE39417

PATIENT
  Age: 64 Year
  Sex: Female
  Weight: 122.5 kg

DRUGS (1)
  1. NEXIUM [Suspect]
     Indication: GASTRIC DISORDER
     Route: 048
     Dates: start: 2011, end: 201311

REACTIONS (2)
  - Drug dose omission [Unknown]
  - Off label use [Unknown]
